FAERS Safety Report 9958674 (Version 1)
Quarter: 2014Q1

REPORT INFORMATION
  Report Type: Spontaneous
  Country: FR (occurrence: None)
  Receive Date: 20140228
  Receipt Date: 20140228
  Transmission Date: 20141002
  Serious: Yes (Death)
  Sender: FDA-Public Use
  Company Number: FK201400585

PATIENT
  Age: 62 Year
  Sex: Male

DRUGS (8)
  1. PIPERACILLIN / TAZOBACTAM [Suspect]
     Indication: SUPERINFECTION
     Dosage: 4.5 , 3 IN 1 D, INTRAVENOUS (NOT OTHERWISE SPECIFIED)
     Route: 042
     Dates: start: 20131021, end: 20131106
  2. CLINDAMYCINE KABI [Suspect]
     Indication: SUPERINFECTION
     Dosage: 600 MG, 4 IN 1 D, INTRAVENOUS (NOT OTHERWISE SPECIFIED)
     Route: 042
     Dates: start: 20131021, end: 20131114
  3. VANCOMYCIN [Suspect]
     Indication: PRODUCT USED FOR UNKNOWN INDICATION
  4. DIGOXIN (DIGOXIN) (DIGOXIN) [Concomitant]
  5. CRESTIR *RISYVASTATIN CALCIUM) (ROSUVASTATIN CALCIUM) [Concomitant]
  6. PREVISCAN (PENTOXIFYLLINE) (PENTOXIFYLLINE) [Concomitant]
  7. LOVENOX (ENOXAPARIN SODIUM) (ENOXAPARIN SODIUM) [Concomitant]
  8. ENALAPRIL (ENALAPRIL) (ENALAPRIL) [Concomitant]

REACTIONS (18)
  - Drug reaction with eosinophilia and systemic symptoms [None]
  - Diarrhoea [None]
  - Overdose [None]
  - Renal failure acute [None]
  - Leukocyturia [None]
  - Acute respiratory distress syndrome [None]
  - Dehydration [None]
  - Neutrophilia [None]
  - Metabolic acidosis [None]
  - Bradycardia [None]
  - Loss of consciousness [None]
  - Cyanosis [None]
  - Cardiac arrest [None]
  - Right ventricular failure [None]
  - Myocarditis [None]
  - Dialysis [None]
  - Dermatitis exfoliative [None]
  - Coma [None]
